FAERS Safety Report 10437965 (Version 1)
Quarter: 2014Q3

REPORT INFORMATION
  Report Type: Spontaneous
  Country: DE (occurrence: None)
  Receive Date: 20140904
  Receipt Date: 20140904
  Transmission Date: 20150326
  Serious: Yes (Hospitalization, Other)
  Sender: FDA-Public Use
  Company Number: DE-ZYDUS-004537

PATIENT
  Age: 54 Year
  Sex: Male

DRUGS (2)
  1. QUETIAPINE (QUETIAPINE) [Suspect]
     Active Substance: QUETIAPINE
     Dates: start: 201202
  2. VALPROIC ACID. [Suspect]
     Active Substance: VALPROIC ACID
     Dates: start: 201202

REACTIONS (4)
  - Antidiuretic hormone abnormality [None]
  - Drug interaction [None]
  - Altered state of consciousness [None]
  - Sedation [None]
